FAERS Safety Report 5504964-4 (Version None)
Quarter: 2007Q4

REPORT INFORMATION
  Report Type: 
  Country: None (occurrence: None)
  Receive Date: 20071102
  Receipt Date: 20071031
  Transmission Date: 20080405
  Serious: Yes (Death, Hospitalization)
  Sender: FDA-Public Use
  Company Number: FR-AVENTIS-200713460FR

PATIENT
  Age: 52 Year
  Sex: Female

DRUGS (7)
  1. TAXOTERE [Suspect]
     Indication: BREAST CANCER FEMALE
     Route: 042
     Dates: start: 20070921, end: 20070921
  2. NEULASTA [Suspect]
     Indication: DRUG USE FOR UNKNOWN INDICATION
     Route: 058
     Dates: start: 20070922, end: 20070922
  3. SOLU-MEDROL [Suspect]
     Indication: PROPHYLAXIS
     Route: 042
     Dates: start: 20070901, end: 20070901
  4. ZOPHREN                            /00955301/ [Suspect]
     Indication: PROPHYLAXIS
     Dates: start: 20070901, end: 20070901
  5. FLUOROURACIL [Concomitant]
  6. EPIRUBICIN [Concomitant]
  7. CYCLOPHOSPHAMIDE [Concomitant]

REACTIONS (6)
  - BLOOD CREATINE PHOSPHOKINASE INCREASED [None]
  - C-REACTIVE PROTEIN INCREASED [None]
  - MYALGIA [None]
  - PYREXIA [None]
  - RHABDOMYOLYSIS [None]
  - TOXIC SHOCK SYNDROME STAPHYLOCOCCAL [None]
